FAERS Safety Report 5242473-0 (Version None)
Quarter: 2007Q1

REPORT INFORMATION
  Report Type: 
  Country: None (occurrence: None)
  Receive Date: 20070214
  Receipt Date: 20070126
  Transmission Date: 20070707
  Serious: Yes (Life-Threatening, Other)
  Sender: FDA-Public Use
  Company Number: DSA_29295_2007

PATIENT
  Age: 62 Year
  Sex: Female

DRUGS (4)
  1. DILTIAZEM HCL [Suspect]
     Indication: HYPERTENSION
     Dosage: 240 MG Q DAY
  2. ENALAPRIL MALEATE [Suspect]
     Indication: HYPERTENSION
     Dosage: DF
  3. INDAPAMIDE [Concomitant]
  4. UNSPECIFIED MEDICATIONS [Concomitant]

REACTIONS (5)
  - ARRHYTHMIA [None]
  - EXTRASYSTOLES [None]
  - NODAL RHYTHM [None]
  - REFUSAL OF TREATMENT BY PATIENT [None]
  - SINUS BRADYCARDIA [None]
